FAERS Safety Report 5047375-0 (Version None)
Quarter: 2006Q2

REPORT INFORMATION
  Report Type: 
  Country: None (occurrence: None)
  Receive Date: 20060601
  Receipt Date: 20060326
  Transmission Date: 20061013
  Serious: No
  Sender: FDA-Public Use
  Company Number: 2006PV010901

PATIENT
  Age: 48 Year
  Sex: Male
  Weight: 103.4201 kg

DRUGS (4)
  1. BYETTA [Suspect]
     Indication: DIABETES MELLITUS NON-INSULIN-DEPENDENT
     Dosage: 5 MCG;QAM;SC
     Route: 058
     Dates: start: 20060303, end: 20060307
  2. BYETTA [Suspect]
     Indication: DIABETES MELLITUS NON-INSULIN-DEPENDENT
     Dosage: 5 MCG;QAM;SC
     Route: 058
     Dates: start: 20060325
  3. METFORMIN HCL [Concomitant]
  4. LOPID [Concomitant]

REACTIONS (9)
  - ABNORMAL FAECES [None]
  - CHILLS [None]
  - COLD SWEAT [None]
  - DIARRHOEA [None]
  - INCORRECT DOSE ADMINISTERED [None]
  - MEDICATION ERROR [None]
  - NAUSEA [None]
  - NIGHT SWEATS [None]
  - WEIGHT DECREASED [None]
